FAERS Safety Report 21151482 (Version 1)
Quarter: 2022Q3

REPORT INFORMATION
  Report Type: Spontaneous
  Country: GB (occurrence: GB)
  Receive Date: 20220730
  Receipt Date: 20220730
  Transmission Date: 20221026
  Serious: Yes (Life-Threatening, Other)
  Sender: FDA-Public Use
  Company Number: GB-MHRA-TPP44869870C8317175YC1657724040316

PATIENT
  Age: 52 Year
  Sex: Male
  Weight: 94 kg

DRUGS (12)
  1. CIPROFLOXACIN [Suspect]
     Active Substance: CIPROFLOXACIN
     Indication: Cholecystitis
     Route: 065
     Dates: start: 20220629
  2. METRONIDAZOLE [Suspect]
     Active Substance: METRONIDAZOLE
     Indication: Product used for unknown indication
     Route: 065
  3. Adcal [Concomitant]
     Indication: Product used for unknown indication
     Route: 065
     Dates: start: 20211108
  4. BISOPROLOL [Concomitant]
     Active Substance: BISOPROLOL
     Indication: Product used for unknown indication
     Dosage: TAKE IN THE MORNING
     Route: 065
     Dates: start: 20211207
  5. BUMETANIDE [Concomitant]
     Active Substance: BUMETANIDE
     Indication: Product used for unknown indication
     Dosage: TAKE IN MORNING
     Route: 065
     Dates: start: 20220222
  6. CAPSAICIN [Concomitant]
     Active Substance: CAPSAICIN
     Indication: Product used for unknown indication
     Dosage: APPLY 3-4 TIMES
     Route: 065
     Dates: start: 20220506, end: 20220603
  7. DAPAGLIFLOZIN [Concomitant]
     Active Substance: DAPAGLIFLOZIN
     Indication: Product used for unknown indication
     Route: 065
     Dates: start: 20211207
  8. DULOXETINE [Concomitant]
     Active Substance: DULOXETINE
     Indication: Product used for unknown indication
     Dosage: 30MG ONCE DAILY FOR 2 WEEKS, THEN 60MG ONCE DAI...
     Route: 065
     Dates: start: 20220506, end: 20220603
  9. FOLIC ACID [Concomitant]
     Active Substance: FOLIC ACID
     Indication: Product used for unknown indication
     Route: 065
     Dates: start: 20211108
  10. OMEPRAZOLE [Concomitant]
     Active Substance: OMEPRAZOLE
     Indication: Product used for unknown indication
     Route: 065
     Dates: start: 20211207
  11. RAMIPRIL [Concomitant]
     Active Substance: RAMIPRIL
     Indication: Product used for unknown indication
     Route: 065
     Dates: start: 20220222
  12. SPIRONOLACTONE [Concomitant]
     Active Substance: SPIRONOLACTONE
     Indication: Product used for unknown indication
     Dosage: 12.5MG (HALF TABLET)
     Route: 065
     Dates: start: 20220513

REACTIONS (7)
  - Anaphylactic reaction [Recovered/Resolved]
  - Malaise [Unknown]
  - Hypotension [Unknown]
  - Eye pruritus [Unknown]
  - Lip swelling [Unknown]
  - Swollen tongue [Unknown]
  - Throat tightness [Unknown]

NARRATIVE: CASE EVENT DATE: 20220629
